FAERS Safety Report 25982250 (Version 1)
Quarter: 2025Q4

REPORT INFORMATION
  Report Type: Report from Study
  Country: US (occurrence: US)
  Receive Date: 20251031
  Receipt Date: 20251031
  Transmission Date: 20260119
  Serious: Yes (Death, Other)
  Sender: ACADIA PHARMACEUTICALS
  Company Number: US-ACADIA PHARMACEUTICALS INC.-ACA-2025-PIM-011653

PATIENT
  Sex: Male

DRUGS (13)
  1. NUPLAZID [Suspect]
     Active Substance: PIMAVANSERIN TARTRATE
     Indication: Hallucination
     Dosage: 34 MILLIGRAM, QD
     Route: 048
     Dates: start: 20231110, end: 20251011
  2. BACLOFEN [Concomitant]
     Active Substance: BACLOFEN
  3. CARBIDOPA\LEVODOPA [Concomitant]
     Active Substance: CARBIDOPA\LEVODOPA
  4. FAMOTIDINE [Concomitant]
     Active Substance: FAMOTIDINE
  5. GLYCOPYRROLATE [Concomitant]
     Active Substance: GLYCOPYRROLATE
  6. LOSARTAN [Concomitant]
     Active Substance: LOSARTAN
  7. PRAZOSIN [Concomitant]
     Active Substance: PRAZOSIN
  8. QUETIAPINE [Concomitant]
     Active Substance: QUETIAPINE
  9. RISPERIDONE [Concomitant]
     Active Substance: RISPERIDONE
  10. ROPINIROLE [Concomitant]
     Active Substance: ROPINIROLE
  11. SERTRALINE [Concomitant]
     Active Substance: SERTRALINE HYDROCHLORIDE
  12. TAMSULOSIN [Concomitant]
     Active Substance: TAMSULOSIN
  13. TRAZODONE [Concomitant]
     Active Substance: TRAZODONE HYDROCHLORIDE

REACTIONS (2)
  - Parkinson^s disease [Fatal]
  - Product use in unapproved indication [Recovered/Resolved]
